FAERS Safety Report 23132918 (Version 1)
Quarter: 2023Q4

REPORT INFORMATION
  Report Type: Spontaneous
  Country: DE (occurrence: DE)
  Receive Date: 20231101
  Receipt Date: 20231101
  Transmission Date: 20240110
  Serious: Yes (Congenital Anomaly)
  Sender: FDA-Public Use
  Company Number: DE-EMBRYOTOX-202116755

PATIENT
  Age: 1 Day
  Sex: Female
  Weight: 3.03 kg

DRUGS (2)
  1. DULOXETINE [Suspect]
     Active Substance: DULOXETINE
     Indication: Depression
     Dosage: 120 [MG/D ]/ BEGINNING 120 MG/D, FROM GW 3/4 ONWARDS: 90 MG/D, FURTHER COURSE 60 MG/D AND 30 MG/D (D
     Route: 064
     Dates: start: 20210907, end: 20220602
  2. QUETIAPINE [Suspect]
     Active Substance: QUETIAPINE
     Indication: Personality disorder
     Dosage: 25 [MG/D ]/ AT THE BEGINNING OF PREGNANCY, ON DEMAND
     Route: 064

REACTIONS (5)
  - Patent ductus arteriosus [Recovered/Resolved]
  - Atrial septal defect [Recovered/Resolved]
  - Ventricular septal defect [Recovered/Resolved]
  - Atrial septal defect [Recovered/Resolved]
  - Foetal exposure during pregnancy [Unknown]

NARRATIVE: CASE EVENT DATE: 20220601
